APPROVED DRUG PRODUCT: AKBETA
Active Ingredient: LEVOBUNOLOL HYDROCHLORIDE
Strength: 0.5%
Dosage Form/Route: SOLUTION/DROPS;OPHTHALMIC
Application: A074780 | Product #001
Applicant: EPIC PHARMA LLC
Approved: Oct 29, 1996 | RLD: No | RS: No | Type: DISCN